APPROVED DRUG PRODUCT: CYPROHEPTADINE HYDROCHLORIDE
Active Ingredient: CYPROHEPTADINE HYDROCHLORIDE
Strength: 4MG
Dosage Form/Route: TABLET;ORAL
Application: A206676 | Product #001 | TE Code: AA
Applicant: REGCON HOLDINGS LLC
Approved: Apr 12, 2019 | RLD: No | RS: No | Type: RX